FAERS Safety Report 9471016 (Version 2)
Quarter: 2013Q4

REPORT INFORMATION
  Report Type: Spontaneous
  Country: US (occurrence: US)
  Receive Date: 20130822
  Receipt Date: 20131230
  Transmission Date: 20140711
  Serious: No
  Sender: FDA-Public Use
  Company Number: US-BAYER-2013-100604

PATIENT
  Sex: Female
  Weight: 77 kg

DRUGS (10)
  1. BETASERON [Suspect]
     Dosage: UNK
     Dates: start: 2005
  2. BETASERON [Suspect]
     Dosage: 0.25 MG, QOD
     Route: 058
  3. ZYRTEC [Concomitant]
     Dosage: 5 MG, UNK
  4. SYNTHROID [Concomitant]
     Dosage: 25 MCG/L, UNK
  5. VITAMIN C [Concomitant]
     Dosage: 500 MG, UNK
  6. PORTIA-28 [Concomitant]
     Dosage: UNK
  7. ADVIL [Concomitant]
     Dosage: 200 MG, UNK
  8. VITAMIN B12 [Concomitant]
     Dosage: 500 MCG/L, UNK
  9. CRANBERRY [Concomitant]
     Dosage: 200 MG, UNK
  10. TOPIRAMATE [Concomitant]
     Dosage: 25 MG, UNK

REACTIONS (2)
  - Influenza like illness [Recovered/Resolved]
  - Headache [Not Recovered/Not Resolved]
